FAERS Safety Report 7037309-1 (Version None)
Quarter: 2010Q4

REPORT INFORMATION
  Report Type: 
  Country: None (occurrence: None)
  Receive Date: 20101011
  Receipt Date: 20101001
  Transmission Date: 20110411
  Serious: Yes (Death, Life-Threatening, Other)
  Sender: FDA-Public Use
  Company Number: JP-ROCHE-731371

PATIENT
  Age: 66 Year
  Sex: Male

DRUGS (4)
  1. PEGASYS [Suspect]
     Indication: HEPATITIS C
     Route: 058
     Dates: start: 20100531, end: 20100701
  2. PEGASYS [Suspect]
     Route: 058
     Dates: start: 20100802, end: 20100913
  3. COPEGUS [Suspect]
     Indication: HEPATITIS C
     Route: 048
     Dates: start: 20100531, end: 20100701
  4. COPEGUS [Suspect]
     Route: 048
     Dates: start: 20100802, end: 20100913

REACTIONS (3)
  - HEPATIC ENCEPHALOPATHY [None]
  - PNEUMONIA [None]
  - WHITE BLOOD CELL COUNT DECREASED [None]
